FAERS Safety Report 14032600 (Version 3)
Quarter: 2019Q1

REPORT INFORMATION
  Report Type: Spontaneous
  Country: IT (occurrence: IT)
  Receive Date: 20171003
  Receipt Date: 20190223
  Transmission Date: 20190417
  Serious: Yes (Hospitalization)
  Sender: FDA-Public Use
  Company Number: IT-ACCORD-059306

PATIENT
  Age: 82 Year
  Sex: Female

DRUGS (17)
  1. SIRDALUD [Concomitant]
     Active Substance: TIZANIDINE
  2. CLODY [Concomitant]
     Active Substance: CLODRONATE DISODIUM
  3. ESIDREX [Suspect]
     Active Substance: HYDROCHLOROTHIAZIDE
     Indication: HYPERTENSION
     Dosage: 12.5 MG, QD
     Route: 048
  4. LEXOTAN [Concomitant]
     Active Substance: BROMAZEPAM
     Dosage: 15 DRP, UNK (15 DROP (1/12 ML)
     Route: 048
  5. DIDROGYL [Concomitant]
     Active Substance: CALCIFEDIOL
     Route: 048
  6. TEGRETOL [Concomitant]
     Active Substance: CARBAMAZEPINE
     Route: 048
  7. EFFERALGAN [Concomitant]
     Active Substance: ACETAMINOPHEN
     Route: 048
  8. CASENLAX [Concomitant]
     Route: 048
  9. CYMBALTA [Suspect]
     Active Substance: DULOXETINE HYDROCHLORIDE
     Indication: NEURALGIA
     Dosage: 1 DF, QD
     Route: 048
     Dates: start: 20170101, end: 20170609
  10. LANSOPRAZOLE. [Concomitant]
     Active Substance: LANSOPRAZOLE
     Route: 048
  11. SIMVASTATIN. [Concomitant]
     Active Substance: SIMVASTATIN
     Route: 048
  12. AMLODIPINE [Concomitant]
     Active Substance: AMLODIPINE BESYLATE
  13. RAMIPRIL. [Suspect]
     Active Substance: RAMIPRIL
     Indication: HYPERTENSION
     Dosage: 2 DF, QD
     Route: 048
     Dates: start: 20170101, end: 20170609
  14. LASIX [Concomitant]
     Active Substance: FUROSEMIDE
     Dosage: 15 DRP, UNK
  15. GABAPENTIN. [Concomitant]
     Active Substance: GABAPENTIN
     Route: 048
  16. ASCRIPTIN [Concomitant]
     Active Substance: ASPIRIN
     Route: 048
  17. CONTRAMAL [Concomitant]
     Active Substance: TRAMADOL HYDROCHLORIDE
     Route: 048

REACTIONS (2)
  - Bradyphrenia [Unknown]
  - Hyponatraemia [Unknown]

NARRATIVE: CASE EVENT DATE: 20170609
